FAERS Safety Report 8811531 (Version 3)
Quarter: 2013Q1

REPORT INFORMATION
  Report Type: Spontaneous
  Country: US (occurrence: None)
  Receive Date: 20120921
  Receipt Date: 20121105
  Transmission Date: 20140127
  Serious: Yes (Other)
  Sender: FDA-Public Use
  Company Number: US-1194137

PATIENT
  Age: 60 Year
  Sex: Male
  Weight: 77.11 kg

DRUGS (4)
  1. DUREZOL [Suspect]
     Indication: POSTOPERATIVE CARE
     Route: 047
     Dates: start: 20120301, end: 20120315
  2. VIGAMOX [Suspect]
     Route: 047
     Dates: start: 20120301, end: 20120315
  3. CRESTOR [Concomitant]
  4. ASPIRIN [Concomitant]

REACTIONS (5)
  - Optic ischaemic neuropathy [None]
  - Visual impairment [None]
  - Intraocular pressure increased [None]
  - Papilloedema [None]
  - Visual acuity reduced [None]
